FAERS Safety Report 16867247 (Version 1)
Quarter: 2019Q3

REPORT INFORMATION
  Report Type: Spontaneous
  Country: US (occurrence: US)
  Receive Date: 20190930
  Receipt Date: 20190930
  Transmission Date: 20191005
  Serious: No
  Sender: FDA-Public Use
  Company Number: US-MYLANLABS-2019M1087220

PATIENT
  Age: 64 Year
  Sex: Female
  Weight: 54 kg

DRUGS (5)
  1. ESTROGEN [Concomitant]
     Active Substance: ESTROGENS
  2. METHYCLOTHIAZIDE TABLETS, USP [Suspect]
     Active Substance: METHYCLOTHIAZIDE
     Indication: FLUID RETENTION
     Dosage: 5 MILLIGRAM, QD
     Route: 048
  3. CELECOXIB. [Concomitant]
     Active Substance: CELECOXIB
     Indication: PAIN
     Dosage: UNK UNK, PRN
  4. POTASSIUM [Concomitant]
     Active Substance: POTASSIUM
     Dosage: UNK
     Route: 048
  5. DHA [Concomitant]
     Active Substance: DIETARY SUPPLEMENT
     Indication: SUPPLEMENTATION THERAPY
     Dosage: NON-FISH- BASED SUPPLEMENT

REACTIONS (1)
  - Blood potassium abnormal [Not Recovered/Not Resolved]
